FAERS Safety Report 18110198 (Version 1)
Quarter: 2020Q3

REPORT INFORMATION
  Report Type: Spontaneous
  Country: TR (occurrence: TR)
  Receive Date: 20200804
  Receipt Date: 20200804
  Transmission Date: 20201103
  Serious: Yes (Hospitalization)
  Sender: FDA-Public Use
  Company Number: TR-AMNEAL PHARMACEUTICALS-2020-AMRX-02261

PATIENT
  Age: 78 Year
  Sex: Female

DRUGS (1)
  1. DESMOPRESSIN ACETATE IR [Suspect]
     Active Substance: DESMOPRESSIN ACETATE
     Indication: URINARY INCONTINENCE
     Dosage: 0.2 MILLIGRAM, DAILY
     Route: 065

REACTIONS (1)
  - Pulmonary oedema [Recovered/Resolved]
